FAERS Safety Report 8197835-9 (Version None)
Quarter: 2012Q1

REPORT INFORMATION
  Report Type: 
  Country: None (occurrence: None)
  Receive Date: 20120309
  Receipt Date: 20120301
  Transmission Date: 20120608
  Serious: Yes (Hospitalization)
  Sender: FDA-Public Use
  Company Number: GB-UCBSA-052605

PATIENT
  Age: 57 Year
  Sex: Female
  Weight: 70.8 kg

DRUGS (12)
  1. LITHIUM CARBONATE [Concomitant]
  2. METHOTREXATE [Concomitant]
     Indication: RHEUMATOID ARTHRITIS
     Route: 048
     Dates: start: 20060101, end: 20111201
  3. CERTOLIZUMAB PEGOL [Suspect]
     Indication: RHEUMATOID ARTHRITIS
     Route: 058
     Dates: start: 20110905, end: 20110905
  4. ATORVASTATIN [Concomitant]
  5. DIPROBASE [Concomitant]
     Indication: PSORIASIS
  6. OMEPRAZOLE [Concomitant]
  7. INSULIN [Concomitant]
  8. ASPIRIN [Concomitant]
  9. DICLOFENAC SODIUM [Concomitant]
  10. FOLIC ACID [Concomitant]
  11. LISINOPRIL [Concomitant]
  12. LITHIUM CARBONATE [Concomitant]

REACTIONS (3)
  - BREAST CANCER [None]
  - ERYTHRODERMIC PSORIASIS [None]
  - PUSTULAR PSORIASIS [None]
